FAERS Safety Report 25001268 (Version 2)
Quarter: 2025Q1

REPORT INFORMATION
  Report Type: Spontaneous
  Country: US (occurrence: US)
  Receive Date: 20250223
  Receipt Date: 20250224
  Transmission Date: 20250409
  Serious: No
  Sender: NOVARTIS
  Company Number: US-002147023-NVSC2025US030182

PATIENT
  Sex: Female

DRUGS (1)
  1. COSENTYX [Suspect]
     Active Substance: SECUKINUMAB
     Indication: Product used for unknown indication
     Dosage: UNK, QMO (300MG/2ML) LEFT THIGH
     Route: 050

REACTIONS (6)
  - Psoriasis [Unknown]
  - Device malfunction [Unknown]
  - Device leakage [Unknown]
  - Illness [Unknown]
  - Incorrect dose administered by device [Unknown]
  - Product dose omission issue [Unknown]
